FAERS Safety Report 5519288-9 (Version None)
Quarter: 2007Q4

REPORT INFORMATION
  Report Type: 
  Country: None (occurrence: None)
  Receive Date: 20071114
  Receipt Date: 20071030
  Transmission Date: 20080405
  Serious: Yes (Other)
  Sender: FDA-Public Use
  Company Number: 2007S1011200

PATIENT
  Age: 50 Year
  Sex: Female

DRUGS (2)
  1. OMEPRAZOLE [Suspect]
     Indication: DRUG USE FOR UNKNOWN INDICATION
     Dosage: 20 MG; DAILY; ORAL
     Route: 048
     Dates: start: 20070921, end: 20071019
  2. CALCIPOTRIENE [Concomitant]

REACTIONS (1)
  - DRUG INEFFECTIVE [None]
